FAERS Safety Report 12478367 (Version 1)
Quarter: 2016Q2

REPORT INFORMATION
  Report Type: Spontaneous
  Country: SE (occurrence: SE)
  Receive Date: 20160618
  Receipt Date: 20160618
  Transmission Date: 20160815
  Serious: Yes (Other)
  Sender: FDA-Public Use
  Company Number: SE-BRISTOL-MYERS SQUIBB COMPANY-BMS-2016-034317

PATIENT
  Age: 72 Year
  Sex: Male

DRUGS (3)
  1. SPRYCEL [Suspect]
     Active Substance: DASATINIB
     Dosage: 70 UNK, UNK
     Route: 065
     Dates: start: 20151202, end: 20160129
  2. SPRYCEL [Suspect]
     Active Substance: DASATINIB
     Indication: CHRONIC MYELOID LEUKAEMIA
     Dosage: 100 MG, UNK
     Route: 065
     Dates: start: 20130523
  3. INOLAXOL                           /00561901/ [Concomitant]
     Indication: PRODUCT USED FOR UNKNOWN INDICATION
     Dosage: 1 SACHET
     Route: 065
     Dates: start: 20130402

REACTIONS (9)
  - Blood creatinine increased [Unknown]
  - Aspiration pleural cavity [Unknown]
  - Dyspnoea [Recovered/Resolved]
  - Cough [Unknown]
  - Asthenia [Unknown]
  - Pulmonary mass [Unknown]
  - Respiratory failure [Unknown]
  - Nasopharyngitis [Unknown]
  - Pleural effusion [Unknown]

NARRATIVE: CASE EVENT DATE: 2015
